FAERS Safety Report 13715594 (Version 1)
Quarter: 2017Q3

REPORT INFORMATION
  Report Type: Spontaneous
  Country: DE (occurrence: DE)
  Receive Date: 20170705
  Receipt Date: 20170705
  Transmission Date: 20171127
  Serious: Yes (Congenital Anomaly, Other)
  Sender: FDA-Public Use
  Company Number: DE-TORRENT-00006658

PATIENT
  Age: 1 Day
  Sex: Male
  Weight: 2 kg

DRUGS (11)
  1. CITALOPRAM HYDROBROMIDE. [Suspect]
     Active Substance: CITALOPRAM HYDROBROMIDE
  2. IRON [Concomitant]
     Active Substance: IRON
  3. CALCIUM [Concomitant]
     Active Substance: CALCIUM
  4. FOLIO FORTE [Concomitant]
     Active Substance: FOLIC ACID\VITAMINS
  5. VITAMIN B12 [Concomitant]
     Active Substance: CYANOCOBALAMIN
  6. IBUPROFEN. [Concomitant]
     Active Substance: IBUPROFEN
  7. BEGRIPAL [Concomitant]
  8. LEVOTHYROXINE. [Concomitant]
     Active Substance: LEVOTHYROXINE
  9. LAMOTRIGINE. [Suspect]
     Active Substance: LAMOTRIGINE
  10. AGOMELATINE [Suspect]
     Active Substance: AGOMELATINE
  11. OXYTOCIN. [Concomitant]
     Active Substance: OXYTOCIN

REACTIONS (3)
  - Haemangioma congenital [Recovering/Resolving]
  - Hyperbilirubinaemia neonatal [Recovered/Resolved]
  - Foetal exposure during pregnancy [Unknown]

NARRATIVE: CASE EVENT DATE: 20161217
